FAERS Safety Report 4781000-9 (Version None)
Quarter: 2005Q3

REPORT INFORMATION
  Report Type: 
  Country: None (occurrence: None)
  Receive Date: 20050926
  Receipt Date: 20050914
  Transmission Date: 20060218
  Serious: Yes (Death, Other)
  Sender: FDA-Public Use
  Company Number: 150-20785-05070308

PATIENT
  Age: 59 Year
  Sex: Female

DRUGS (1)
  1. THALIDOMIDE - PHARMION (THALIDOMIDE) (50 MILLIGRAM, CAPSULES) [Suspect]
     Indication: MULTIPLE MYELOMA
     Dosage: 100 MG, NIGHTLY, ORAL   A FEW DAYS
     Route: 048

REACTIONS (4)
  - CONSTIPATION [None]
  - PICKWICKIAN SYNDROME [None]
  - RENAL FAILURE [None]
  - RESPIRATORY FAILURE [None]
